FAERS Safety Report 23605036 (Version 1)
Quarter: 2024Q1

REPORT INFORMATION
  Report Type: Spontaneous
  Country: US (occurrence: None)
  Receive Date: 20240306
  Receipt Date: 20240306
  Transmission Date: 20240410
  Serious: Yes (Hospitalization)
  Sender: FDA-Public Use
  Company Number: None

PATIENT
  Age: 71 Year
  Sex: Female
  Weight: 58.5 kg

DRUGS (4)
  1. PEMETREXED [Suspect]
     Active Substance: PEMETREXED
     Indication: Non-small cell lung cancer stage II
     Dosage: OTHER FREQUENCY : EVERY 3 WEEKS X 4;?
     Route: 042
     Dates: start: 20230908, end: 20231110
  2. CARBOPLATIN [Suspect]
     Active Substance: CARBOPLATIN
  3. ELIQUIS [Concomitant]
     Active Substance: APIXABAN
  4. TAGRISSO [Concomitant]
     Active Substance: OSIMERTINIB

REACTIONS (1)
  - Pulmonary embolism [None]

NARRATIVE: CASE EVENT DATE: 20231121
